FAERS Safety Report 16912541 (Version 1)
Quarter: 2019Q4

REPORT INFORMATION
  Report Type: Report from Study
  Country: IT (occurrence: IT)
  Receive Date: 20191014
  Receipt Date: 20191014
  Transmission Date: 20200122
  Serious: Yes (Life-Threatening, Hospitalization, Other)
  Sender: FDA-Public Use
  Company Number: IT-AUROBINDO-AUR-APL-2019-064097

PATIENT
  Age: 67 Year
  Sex: Male

DRUGS (2)
  1. CAPECITABINE. [Concomitant]
     Active Substance: CAPECITABINE
     Indication: GASTROINTESTINAL NEOPLASM
     Dosage: UNK,5 CYCLE
     Route: 065
  2. OXALIPLATIN. [Suspect]
     Active Substance: OXALIPLATIN
     Indication: GASTROINTESTINAL NEOPLASM
     Dosage: UNK,5 CYCLE
     Route: 065

REACTIONS (5)
  - Periportal sinus dilatation [Unknown]
  - Portal hypertension [Unknown]
  - Non-cirrhotic portal hypertension [Not Recovered/Not Resolved]
  - Oesophageal varices haemorrhage [Recovering/Resolving]
  - Portal shunt [Unknown]
